FAERS Safety Report 6311701-2 (Version None)
Quarter: 2009Q3

REPORT INFORMATION
  Report Type: 
  Country: None (occurrence: None)
  Receive Date: 20090813
  Receipt Date: 20090813
  Transmission Date: 20100115
  Serious: No
  Sender: FDA-Public Use
  Company Number: None

PATIENT
  Age: 69 Year
  Sex: Male
  Weight: 102.0593 kg

DRUGS (1)
  1. PROPOXYPHENE HCL AND ACETAMINOPHEN [Suspect]
     Indication: PAIN
     Dosage: 1 TABLET 3/DAY AS NEEDED MOUTH 3 DAYS IN EARLY JUNE FROM 16, 2009
     Route: 048
     Dates: start: 20090601

REACTIONS (2)
  - DECREASED INTEREST [None]
  - PERSONALITY CHANGE [None]
